FAERS Safety Report 5751367-3 (Version None)
Quarter: 2008Q2

REPORT INFORMATION
  Report Type: 
  Country: None (occurrence: None)
  Receive Date: 20080528
  Receipt Date: 20080519
  Transmission Date: 20081010
  Serious: Yes (Other)
  Sender: FDA-Public Use
  Company Number: JP-PFIZER INC-2008043407

PATIENT
  Age: 68 Year
  Sex: Male

DRUGS (8)
  1. EPLERENONE [Suspect]
     Dosage: DAILY DOSE:50MG
     Route: 048
     Dates: start: 20080428, end: 20080515
  2. LASIX [Concomitant]
     Route: 048
  3. ASPIRIN [Concomitant]
     Route: 048
  4. PARIET [Concomitant]
     Route: 048
  5. OLMETEC [Concomitant]
     Route: 048
  6. ARTIST [Concomitant]
     Route: 048
  7. WARFARIN SODIUM [Concomitant]
     Route: 048
  8. ALLOPURINOL [Concomitant]
     Route: 048

REACTIONS (1)
  - JAUNDICE [None]
